FAERS Safety Report 8812230 (Version 2)
Quarter: 2012Q4

REPORT INFORMATION
  Report Type: 
  Country: US (occurrence: US)
  Receive Date: 20120927
  Receipt Date: 20121004
  Transmission Date: 20130627
  Serious: Yes (Hospitalization, Other)
  Sender: FDA-Public Use
  Company Number: US-BAYER-2012-100838

PATIENT
  Age: 67 Year
  Sex: Female
  Weight: 55.78 kg

DRUGS (18)
  1. BETASERON [Suspect]
     Dosage: 0.25 mg, QOD
     Route: 058
  2. LYRICA [Concomitant]
     Dosage: 100 mg, UNK
  3. INDERAL [Concomitant]
     Dosage: 10 mg, UNK
  4. PRIMIDONE [Concomitant]
     Dosage: 50 mg, UNK
  5. BACLOFEN [Concomitant]
     Dosage: 10 mg, UNK
  6. KLONOPIN [Concomitant]
     Dosage: 2 mg, UNK
  7. FLOMAX (TAMSULOSIN) [Concomitant]
     Dosage: 0.4 mg, UNK
  8. ESTRADIOL [ESTRADIOL] [Concomitant]
     Dosage: 0.05 mg, UNK
  9. RANITIDINE [Concomitant]
     Dosage: 150 mg, UNK
  10. SINGULAIR [Concomitant]
     Dosage: 10 mg, UNK
  11. SYMBICORT [Concomitant]
  12. OMEPRAZOLE [Concomitant]
     Dosage: 20 mg, UNK
  13. VITAMIN B6 [Concomitant]
     Dosage: 50 mg, UNK
  14. VITAMIN D [Concomitant]
     Dosage: 1000 iu, UNK
  15. VITAMIN B12 [Concomitant]
     Dosage: 2000 ?g, UNK
  16. CALCIUM [Concomitant]
  17. DULCOLAX [BISACODYL] [Concomitant]
     Dosage: 5 mg, UNK
  18. OXYCODONE [Concomitant]
     Dosage: 5 mg, UNK

REACTIONS (3)
  - Urinary tract infection [Recovered/Resolved]
  - Laryngitis fungal [Unknown]
  - Oesophageal candidiasis [Unknown]
